FAERS Safety Report 15887220 (Version 3)
Quarter: 2019Q1

REPORT INFORMATION
  Report Type: Spontaneous
  Country: CA (occurrence: CA)
  Receive Date: 20190130
  Receipt Date: 20190222
  Transmission Date: 20190417
  Serious: Yes (Death, Other)
  Sender: FDA-Public Use
  Company Number: CA-ORION CORPORATION ORION PHARMA-TREX2019-0251

PATIENT
  Age: 65 Year
  Sex: Male

DRUGS (2)
  1. METHOTREXATE (TRADE NAME UNKNOWN) [Suspect]
     Active Substance: METHOTREXATE
     Indication: PRODUCT USED FOR UNKNOWN INDICATION
     Route: 065
     Dates: start: 2016
  2. PREDNISONE. [Suspect]
     Active Substance: PREDNISONE
     Indication: PRODUCT USED FOR UNKNOWN INDICATION
     Dosage: ON AND OFF
     Route: 065
     Dates: start: 2018

REACTIONS (4)
  - Embolic stroke [Fatal]
  - Crohn^s disease [Unknown]
  - Drug ineffective [Unknown]
  - Impaired quality of life [Unknown]
